FAERS Safety Report 10027580 (Version 1)
Quarter: 2014Q1

REPORT INFORMATION
  Report Type: Spontaneous
  Country: CA (occurrence: CA)
  Receive Date: 20140321
  Receipt Date: 20140321
  Transmission Date: 20141002
  Serious: Yes (Other)
  Sender: FDA-Public Use
  Company Number: CA-PFIZER INC-2014077627

PATIENT
  Age: 22 Year
  Sex: Male

DRUGS (4)
  1. IBUPROFEN [Suspect]
     Dosage: UNK
     Route: 042
  2. CLONAZEPAM [Suspect]
     Dosage: UNK
     Route: 042
  3. DILAUDID [Suspect]
     Dosage: UNK
     Route: 042
  4. PERCOCET [Suspect]
     Dosage: UNK
     Route: 042

REACTIONS (4)
  - Aggression [Unknown]
  - Drug dependence [Unknown]
  - Judgement impaired [Unknown]
  - Substance abuse [Unknown]
